FAERS Safety Report 17796873 (Version 1)
Quarter: 2020Q2

REPORT INFORMATION
  Report Type: Other
  Country: FR (occurrence: FR)
  Receive Date: 20200518
  Receipt Date: 20200518
  Transmission Date: 20200714
  Serious: Yes (Other)
  Sender: FDA-Public Use
  Company Number: FR-CADILA HEALTHCARE LIMITED-FR-ZYDUS-036956

PATIENT

DRUGS (4)
  1. ANDROCUR [Suspect]
     Active Substance: CYPROTERONE ACETATE
     Indication: ALOPECIA
     Dosage: 1 DOSAGE FORM, QD
     Route: 048
     Dates: start: 2004, end: 201707
  2. SPIRONOLACTONE. [Suspect]
     Active Substance: SPIRONOLACTONE
     Indication: ALOPECIA
     Dosage: 50 MILLIGRAM, QD
     Route: 048
     Dates: start: 201712
  3. DIANE (CYPROTERONE ACETATE\ETHINYL ESTRADIOL) [Suspect]
     Active Substance: CYPROTERONE ACETATE\ETHINYL ESTRADIOL
     Indication: CONTRACEPTION
     Dosage: UNK
     Route: 048
     Dates: start: 1980, end: 2004
  4. OROMONE [Suspect]
     Active Substance: ESTRADIOL
     Indication: ACNE
     Dosage: UNK
     Route: 048
     Dates: start: 200502

REACTIONS (1)
  - Meningioma [Recovering/Resolving]

NARRATIVE: CASE EVENT DATE: 20190207
